FAERS Safety Report 20344406 (Version 2)
Quarter: 2022Q2

REPORT INFORMATION
  Report Type: Spontaneous
  Country: FR (occurrence: FR)
  Receive Date: 20220118
  Receipt Date: 20220401
  Transmission Date: 20220721
  Serious: Yes (Other)
  Sender: FDA-Public Use
  Company Number: FR-LUPIN PHARMACEUTICALS INC.-2022-00464

PATIENT
  Age: 51 Year
  Sex: Male

DRUGS (7)
  1. AZITHROMYCIN [Suspect]
     Active Substance: AZITHROMYCIN
     Indication: Urethritis mycoplasmal
     Dosage: 1 GRAM, SINGLE
     Route: 065
  2. AZITHROMYCIN [Suspect]
     Active Substance: AZITHROMYCIN
     Indication: Evidence based treatment
  3. MOXIFLOXACIN [Suspect]
     Active Substance: MOXIFLOXACIN
     Indication: Urethritis mycoplasmal
     Dosage: 400 MILLIGRAM, QD
     Route: 065
  4. PRISTINAMYCIN [Suspect]
     Active Substance: PRISTINAMYCIN
     Indication: Urethritis mycoplasmal
     Dosage: UNK
     Route: 065
  5. CEFIXIME [Concomitant]
     Active Substance: CEFIXIME
     Indication: Evidence based treatment
     Dosage: UNK
     Route: 048
  6. CEFIXIME [Concomitant]
     Active Substance: CEFIXIME
     Indication: Urethritis mycoplasmal
  7. DOXYCYCLINE [Concomitant]
     Active Substance: DOXYCYCLINE
     Indication: Urethritis mycoplasmal
     Dosage: 200 MILLIGRAM
     Route: 065

REACTIONS (2)
  - Tendon pain [Unknown]
  - Multiple-drug resistance [Unknown]
